FAERS Safety Report 8406687-0 (Version None)
Quarter: 2012Q2

REPORT INFORMATION
  Report Type: 
  Country: None (occurrence: None)
  Receive Date: 20120604
  Receipt Date: 20120530
  Transmission Date: 20120825
  Serious: Yes (Other)
  Sender: FDA-Public Use
  Company Number: US-ASTRAZENECA-2009UW16104

PATIENT
  Age: 53 Year
  Sex: Female
  Weight: 102.5 kg

DRUGS (7)
  1. XANAX [Concomitant]
     Indication: NERVOUSNESS
  2. OXCARBAZEPINE [Concomitant]
     Indication: CONVULSION
     Route: 048
  3. PAROXETINE HCL [Concomitant]
     Indication: NERVOUSNESS
  4. CITALOPRAM HYDROBROMIDE [Concomitant]
     Indication: NERVOUSNESS
  5. CITALOPRAM HYDROBROMIDE [Concomitant]
     Indication: DEPRESSION
  6. SEROQUEL [Suspect]
     Indication: AFFECTIVE DISORDER
     Dosage: 300 MG AM AND 600 MG HS
     Route: 048
  7. PAROXETINE HCL [Concomitant]
     Indication: DEPRESSION

REACTIONS (3)
  - OFF LABEL USE [None]
  - CONVULSION [None]
  - DIABETES MELLITUS [None]
